FAERS Safety Report 4867217-3 (Version None)
Quarter: 2005Q4

REPORT INFORMATION
  Report Type: 
  Country: None (occurrence: None)
  Receive Date: 20051222
  Receipt Date: 20051215
  Transmission Date: 20060501
  Serious: Yes (Other)
  Sender: FDA-Public Use
  Company Number: 163-20785-05050076

PATIENT
  Age: 70 Year
  Sex: Female

DRUGS (8)
  1. THALOMID [Suspect]
     Indication: MULTIPLE MYELOMA
     Dosage: 200 + 300 + 400 MG, DAILY, ORAL
     Route: 048
     Dates: start: 20050418, end: 20050424
  2. THALOMID [Suspect]
     Indication: MULTIPLE MYELOMA
     Dosage: 200 + 300 + 400 MG, DAILY, ORAL
     Route: 048
     Dates: start: 20050425
  3. PERCOCET (OXYCOCET) (UNKNOWN) [Concomitant]
  4. ATENOLOL [Concomitant]
  5. COUMADIN [Concomitant]
  6. PHENERGAN (PROMETHAZINE HYDROCHLORIDE) [Concomitant]
  7. TRICOR (FENOFIBRATE) (UNKNOWN) [Concomitant]
  8. LANOXIN (DIGOXIN) (UNKNOWN) [Concomitant]

REACTIONS (7)
  - BALANCE DISORDER [None]
  - LARYNGITIS [None]
  - MALAISE [None]
  - NASOPHARYNGITIS [None]
  - NAUSEA [None]
  - THYROID DISORDER [None]
  - VOCAL CORD PARALYSIS [None]
